FAERS Safety Report 4621029-4 (Version None)
Quarter: 2005Q1

REPORT INFORMATION
  Report Type: 
  Country: None (occurrence: None)
  Receive Date: 20050325
  Receipt Date: 20050317
  Transmission Date: 20050727
  Serious: No
  Sender: FDA-Public Use
  Company Number: 2005GB00444

PATIENT
  Age: 41 Year
  Sex: Female
  Weight: 115 kg

DRUGS (4)
  1. SEROQUEL [Suspect]
     Indication: BIPOLAR I DISORDER
     Dosage: 400 - 600MG
     Dates: start: 20041210
  2. SEROQUEL [Suspect]
     Indication: BIPOLAR I DISORDER
     Dosage: 150 MG BID PO
     Route: 048
     Dates: end: 20050110
  3. VALPROATE SODIUM [Concomitant]
  4. INSULIN [Concomitant]

REACTIONS (3)
  - MUSCLE TWITCHING [None]
  - MUSCULOSKELETAL STIFFNESS [None]
  - PAIN IN EXTREMITY [None]
